FAERS Safety Report 4635903-6 (Version None)
Quarter: 2005Q2

REPORT INFORMATION
  Report Type: 
  Country: None (occurrence: None)
  Receive Date: 20050415
  Receipt Date: 20050404
  Transmission Date: 20051028
  Serious: Yes (Other)
  Sender: FDA-Public Use
  Company Number: GB-BRISTOL-MYERS SQUIBB COMPANY-12919346

PATIENT
  Age: 55 Year
  Sex: Male
  Weight: 94 kg

DRUGS (2)
  1. PRAVASTATIN SODIUM [Suspect]
     Indication: BLOOD CHOLESTEROL INCREASED
     Dosage: HAD BEEN ON 20MG DAILY; ONSET DATE NOT PROVIDED
     Route: 048
     Dates: start: 20041201, end: 20050117
  2. ASPIRIN [Concomitant]
     Indication: CARDIOVASCULAR DISORDER
     Route: 048
     Dates: start: 19990101

REACTIONS (1)
  - INCONTINENCE [None]
